FAERS Safety Report 20426398 (Version 1)
Quarter: 2022Q1

REPORT INFORMATION
  Report Type: Report from Study
  Country: US (occurrence: US)
  Receive Date: 20220204
  Receipt Date: 20220204
  Transmission Date: 20220424
  Serious: No
  Sender: FDA-Public Use
  Company Number: US-EXELIXIS-CABO-21042832

PATIENT
  Age: 76 Year
  Sex: Male

DRUGS (1)
  1. CABOMETYX [Suspect]
     Active Substance: CABOZANTINIB S-MALATE
     Indication: Product used for unknown indication
     Dosage: 40 MG, QD
     Route: 048
     Dates: start: 202107

REACTIONS (15)
  - Tongue discolouration [Unknown]
  - Feeling abnormal [Unknown]
  - Pruritus [Unknown]
  - Glossodynia [Unknown]
  - Fatigue [Unknown]
  - Dizziness [Unknown]
  - Hypertension [Unknown]
  - Rash [Unknown]
  - Dry skin [Unknown]
  - Dysphonia [Unknown]
  - Diarrhoea [Unknown]
  - Weight decreased [Unknown]
  - Muscle spasms [Unknown]
  - Stomatitis [Unknown]
  - Decreased appetite [Unknown]

NARRATIVE: CASE EVENT DATE: 20210709
